FAERS Safety Report 10195944 (Version 1)
Quarter: 2014Q2

REPORT INFORMATION
  Report Type: Spontaneous
  Country: BR (occurrence: None)
  Receive Date: 20140521
  Receipt Date: 20140521
  Transmission Date: 20141212
  Serious: Yes (Life-Threatening, Other)
  Sender: FDA-Public Use
  Company Number: VAL_03119_2014

PATIENT
  Sex: Female
  Weight: 89 kg

DRUGS (4)
  1. LOTENSIN [Suspect]
     Indication: HYPERTENSION
  2. LOTENSIN HCT [Suspect]
     Indication: PRODUCT USED FOR UNKNOWN INDICATION
     Dosage: (10 MG BENA AND 12.5 MG HYDRO)
  3. DALEGRANTE [Suspect]
     Indication: DIURETIC THERAPY
  4. SERTRALINE [Concomitant]

REACTIONS (8)
  - Diabetes mellitus [None]
  - Feeling abnormal [None]
  - Tremor [None]
  - Musculoskeletal disorder [None]
  - General physical condition abnormal [None]
  - Dizziness [None]
  - Blood pressure decreased [None]
  - Heart rate abnormal [None]
